FAERS Safety Report 6958038-6 (Version None)
Quarter: 2010Q3

REPORT INFORMATION
  Report Type: 
  Country: None (occurrence: None)
  Receive Date: 20100830
  Receipt Date: 20100830
  Transmission Date: 20110219
  Serious: Yes (Other)
  Sender: FDA-Public Use
  Company Number: None

PATIENT
  Age: 54 Year
  Sex: Female
  Weight: 76.2043 kg

DRUGS (1)
  1. EFFEXOR XR [Suspect]
     Indication: PREMENSTRUAL SYNDROME
     Dosage: 150 MG ONE TIME DAILY PO
     Route: 048
     Dates: start: 20080101, end: 20100719

REACTIONS (7)
  - ARTHRALGIA [None]
  - DISTURBANCE IN ATTENTION [None]
  - FLUID RETENTION [None]
  - HEADACHE [None]
  - IMPAIRED WORK ABILITY [None]
  - NAUSEA [None]
  - VOMITING [None]
